FAERS Safety Report 4662491-0 (Version None)
Quarter: 2005Q2

REPORT INFORMATION
  Report Type: 
  Country: None (occurrence: None)
  Receive Date: 20050516
  Receipt Date: 20050223
  Transmission Date: 20051028
  Serious: Yes (Hospitalization)
  Sender: FDA-Public Use
  Company Number: DE-ROCHE-396320

PATIENT
  Age: 64 Year
  Sex: Female
  Weight: 59 kg

DRUGS (2)
  1. XELODA [Suspect]
     Dosage: NO UNIT WAS PROVIDED.
     Route: 048
     Dates: start: 20050105, end: 20050209
  2. HERCEPTIN [Suspect]
     Route: 065
     Dates: start: 20041229

REACTIONS (3)
  - GAIT DISTURBANCE [None]
  - NERVOUS SYSTEM DISORDER [None]
  - PARALYSIS [None]
